FAERS Safety Report 6705897-8 (Version None)
Quarter: 2010Q2

REPORT INFORMATION
  Report Type: 
  Country: None (occurrence: None)
  Receive Date: 20100503
  Receipt Date: 20100215
  Transmission Date: 20101027
  Serious: No
  Sender: FDA-Public Use
  Company Number: US-ASTRAZENECA-2010SE06642

PATIENT
  Age: 917 Month
  Sex: Male

DRUGS (8)
  1. NEXIUM [Suspect]
     Route: 048
     Dates: start: 20080801
  2. VALSARTAN  AND HYDROCHLOROTHIAZIDE [Concomitant]
  3. SIMVASTATIN [Concomitant]
  4. ALBUTEROL [Concomitant]
  5. DICLOFENAC [Concomitant]
  6. NASAL SPRAY [Concomitant]
  7. COUGH SYRUP [Concomitant]
  8. CORTISONE [Concomitant]

REACTIONS (2)
  - CHEST DISCOMFORT [None]
  - DRUG DOSE OMISSION [None]
